FAERS Safety Report 18202287 (Version 1)
Quarter: 2020Q3

REPORT INFORMATION
  Report Type: Spontaneous
  Country: US (occurrence: US)
  Receive Date: 20200827
  Receipt Date: 20200827
  Transmission Date: 20201103
  Serious: Yes (Death)
  Sender: FDA-Public Use
  Company Number: None

PATIENT
  Age: 76 Year
  Sex: Male
  Weight: 77 kg

DRUGS (3)
  1. PLASMA PROTEIN FRACTION [Suspect]
     Active Substance: PLASMA PROTEIN FRACTION (HUMAN)
     Indication: UPPER RESPIRATORY TRACT INFECTION
     Route: 042
     Dates: start: 20200622, end: 20200622
  2. REMDESIVIR (EUA) (REMDESIVIR (EUA)) [Suspect]
     Active Substance: REMDESIVIR
     Indication: UPPER RESPIRATORY TRACT INFECTION
     Dosage: ?          OTHER FREQUENCY:AM;?
     Route: 042
     Dates: start: 20200621, end: 20200627
  3. REMDESIVIR (EUA) (REMDESIVIR (EUA)) [Suspect]
     Active Substance: REMDESIVIR
     Indication: COVID-19
     Dosage: ?          OTHER FREQUENCY:AM;?
     Route: 042
     Dates: start: 20200621, end: 20200627

REACTIONS (2)
  - Respiratory failure [None]
  - Tachypnoea [None]

NARRATIVE: CASE EVENT DATE: 20200627
